FAERS Safety Report 18339828 (Version 2)
Quarter: 2020Q4

REPORT INFORMATION
  Report Type: Report from Study
  Country: ZA (occurrence: ZA)
  Receive Date: 20201002
  Receipt Date: 20201006
  Transmission Date: 20210113
  Serious: Yes (Hospitalization)
  Sender: FDA-Public Use
  Company Number: NVSC2020ZA079727

PATIENT
  Sex: Male

DRUGS (2)
  1. COSENTYX [Suspect]
     Active Substance: SECUKINUMAB
     Dosage: 150 MG, QMO
     Route: 058
  2. COSENTYX [Suspect]
     Active Substance: SECUKINUMAB
     Indication: PSORIATIC ARTHROPATHY
     Dosage: 150 MG, QMO
     Route: 058
     Dates: start: 20200316

REACTIONS (14)
  - Gastroenteritis [Unknown]
  - Hyperhidrosis [Unknown]
  - Hypotension [Unknown]
  - Anxiety [Unknown]
  - Asthenia [Unknown]
  - Hot flush [Unknown]
  - Tinnitus [Unknown]
  - Vomiting [Unknown]
  - Diarrhoea [Unknown]
  - Nephrolithiasis [Unknown]
  - Insomnia [Unknown]
  - Pain [Unknown]
  - Product prescribing error [Unknown]
  - Inappropriate schedule of product administration [Unknown]
